FAERS Safety Report 7285113-1 (Version None)
Quarter: 2011Q1

REPORT INFORMATION
  Report Type: 
  Country: None (occurrence: None)
  Receive Date: 20110210
  Receipt Date: 20110201
  Transmission Date: 20110831
  Serious: Yes (Other)
  Sender: FDA-Public Use
  Company Number: PHHY2010US53260

PATIENT
  Sex: Male
  Weight: 81 kg

DRUGS (5)
  1. EXJADE [Suspect]
     Indication: IRON METABOLISM DISORDER
     Dosage: 1000 MG, DAILY
     Route: 048
  2. EXJADE [Suspect]
     Indication: HAEMANGIOMA
     Dosage: 1500 MG, QD
     Route: 048
     Dates: start: 20100723
  3. DOXIL [Concomitant]
     Dosage: UNK, 28 DOSES
     Dates: start: 20100807, end: 20100924
  4. IMODIUM [Concomitant]
  5. METAMUCIL-2 [Concomitant]

REACTIONS (7)
  - FATIGUE [None]
  - HIATUS HERNIA [None]
  - ABDOMINAL DISCOMFORT [None]
  - DIARRHOEA [None]
  - RENAL DISORDER [None]
  - NAUSEA [None]
  - VOMITING [None]
